FAERS Safety Report 9437731 (Version 3)
Quarter: 2013Q4

REPORT INFORMATION
  Report Type: Report from Study
  Country: GB (occurrence: GB)
  Receive Date: 20130802
  Receipt Date: 20131014
  Transmission Date: 20140711
  Serious: Yes (Life-Threatening, Hospitalization)
  Sender: FDA-Public Use
  Company Number: PHHO2013GB010087

PATIENT
  Sex: 0

DRUGS (7)
  1. AMN107 [Suspect]
     Indication: CHRONIC MYELOID LEUKAEMIA
     Dosage: 400 MG, (3D)
     Dates: start: 20080930
  2. VENTOLIN [Concomitant]
     Indication: ASTHMA
     Dosage: UNK
  3. COMBIVENT [Concomitant]
     Indication: ASTHMA
     Dosage: UNK
     Dates: start: 200002
  4. SYMBICORT [Concomitant]
     Indication: ASTHMA
     Dosage: UNK
     Dates: start: 200102
  5. SPIRIVA [Concomitant]
     Indication: ASTHMA
     Dosage: UNK
     Dates: start: 20091117
  6. AZITHROMYCIN [Concomitant]
     Indication: PROPHYLAXIS
     Dosage: UNK
     Dates: start: 20121010
  7. ANTIBIOTICS [Concomitant]

REACTIONS (1)
  - Myocardial infarction [Recovering/Resolving]
